FAERS Safety Report 8520531-2 (Version None)
Quarter: 2012Q3

REPORT INFORMATION
  Report Type: 
  Country: None (occurrence: None)
  Receive Date: 20120713
  Receipt Date: 20120713
  Transmission Date: 20120928
  Serious: Yes (Hospitalization)
  Sender: FDA-Public Use
  Company Number: None

PATIENT
  Age: 61 Year
  Sex: Female
  Weight: 62.1428 kg

DRUGS (9)
  1. DEXAMETHASONE [Suspect]
     Indication: MULTIPLE MYELOMA
     Dosage: 20MG, DAY OF+AFT VELCADE
     Dates: start: 20120702, end: 20120710
  2. VELCADE [Suspect]
     Indication: MULTIPLE MYELOMA
     Dosage: 1.3MG, D 1,4,8,11
     Dates: start: 20120702, end: 20120709
  3. ACYCLOVIR [Concomitant]
  4. LOVENOX [Concomitant]
  5. PRILOSEC [Concomitant]
  6. COMPAZINE [Concomitant]
  7. OXYCODONE HCL [Concomitant]
  8. ATIVAN [Concomitant]
  9. ONDANSETRON HYDROCHLORIDE [Concomitant]

REACTIONS (2)
  - CHILLS [None]
  - FEBRILE NEUTROPENIA [None]
